FAERS Safety Report 6066096-9 (Version None)
Quarter: 2009Q1

REPORT INFORMATION
  Report Type: 
  Country: None (occurrence: None)
  Receive Date: 20090205
  Receipt Date: 20090128
  Transmission Date: 20090719
  Serious: Yes (Life-Threatening, Hospitalization)
  Sender: FDA-Public Use
  Company Number: DE-BAXTER-2009BH001548

PATIENT
  Age: 67 Year
  Sex: Male
  Weight: 70 kg

DRUGS (12)
  1. ENDOXAN BAXTER [Suspect]
     Indication: IGA NEPHROPATHY
     Route: 048
     Dates: start: 20081106, end: 20090102
  2. DECORTIN [Suspect]
     Indication: IGA NEPHROPATHY
     Route: 048
     Dates: start: 20081106, end: 20090108
  3. IDEOS [Concomitant]
     Route: 048
     Dates: start: 20081106
  4. UROMITEXAN [Concomitant]
     Route: 065
     Dates: start: 20081106
  5. RANITIDINE [Concomitant]
     Route: 048
     Dates: start: 20070706
  6. SIMVASTATIN [Concomitant]
     Route: 048
     Dates: start: 20080418, end: 20090103
  7. MARCUMAR [Concomitant]
     Route: 048
     Dates: start: 20070706, end: 20090103
  8. HYDROCHLOROTHIAZIDE [Concomitant]
     Route: 048
     Dates: start: 20070706, end: 20090103
  9. NITRENDIPINE [Concomitant]
     Route: 048
     Dates: start: 20070706, end: 20090103
  10. VALSARTAN [Concomitant]
     Route: 048
     Dates: start: 20080626, end: 20090107
  11. ENALAPRIL MALEATE [Concomitant]
     Route: 048
     Dates: start: 20081216, end: 20090103
  12. AMIOHEXAL [Concomitant]
     Route: 048
     Dates: start: 20070706, end: 20090107

REACTIONS (8)
  - COUGH [None]
  - DYSPNOEA [None]
  - FATIGUE [None]
  - LUNG INFILTRATION [None]
  - PANCYTOPENIA [None]
  - PRODUCTIVE COUGH [None]
  - PULMONARY HAEMORRHAGE [None]
  - SEPSIS [None]
